FAERS Safety Report 15653518 (Version 1)
Quarter: 2018Q4

REPORT INFORMATION
  Report Type: Spontaneous
  Country: JP (occurrence: JP)
  Receive Date: 20181124
  Receipt Date: 20181124
  Transmission Date: 20190205
  Serious: Yes (Other)
  Sender: FDA-Public Use
  Company Number: JP-ACCORD-092646

PATIENT
  Age: 69 Year
  Sex: Female

DRUGS (2)
  1. PACLITAXEL/PACLITAXEL LIPOSOME [Suspect]
     Active Substance: PACLITAXEL
     Indication: GASTRIC CANCER
  2. RAMUCIRUMAB [Interacting]
     Active Substance: RAMUCIRUMAB
     Indication: GASTRIC CANCER

REACTIONS (2)
  - Pyogenic granuloma [Unknown]
  - Drug interaction [Unknown]
